FAERS Safety Report 11336874 (Version 1)
Quarter: 2015Q3

REPORT INFORMATION
  Report Type: Spontaneous
  Country: US (occurrence: US)
  Receive Date: 20150804
  Receipt Date: 20150804
  Transmission Date: 20151125
  Serious: No
  Sender: FDA-Public Use
  Company Number: US-PFIZER INC-2015246843

PATIENT
  Sex: Female

DRUGS (1)
  1. TIKOSYN [Suspect]
     Active Substance: DOFETILIDE
     Dosage: UNK

REACTIONS (6)
  - Activities of daily living impaired [Unknown]
  - Fatigue [Unknown]
  - Weight increased [Unknown]
  - Pruritus [Unknown]
  - Hyperhidrosis [Unknown]
  - Back pain [Unknown]
